FAERS Safety Report 21699854 (Version 1)
Quarter: 2022Q4

REPORT INFORMATION
  Report Type: Spontaneous
  Country: TW (occurrence: TW)
  Receive Date: 20221208
  Receipt Date: 20221208
  Transmission Date: 20230113
  Serious: Yes (Hospitalization, Other)
  Sender: FDA-Public Use
  Company Number: TW-Accord-290304

PATIENT
  Age: 28 Year
  Sex: Male

DRUGS (10)
  1. MYCOPHENOLATE SODIUM [Suspect]
     Active Substance: MYCOPHENOLATE SODIUM
     Indication: Transplant rejection
  2. TACROLIMUS [Concomitant]
     Active Substance: TACROLIMUS
     Indication: Premedication
     Dosage: DOSE OF FK-506 WAS INCREMENTAL INITIALLY
     Route: 048
  3. CEFTRIAXONE [Concomitant]
     Active Substance: CEFTRIAXONE
  4. PANTOPRAZOLE [Concomitant]
     Active Substance: PANTOPRAZOLE
  5. CARVEDILOL [Concomitant]
     Active Substance: CARVEDILOL
  6. PREDNISOLONE [Concomitant]
     Active Substance: PREDNISOLONE
  7. DOXAZOSIN [Concomitant]
     Active Substance: DOXAZOSIN MESYLATE
  8. AMLODIPINE [Concomitant]
     Active Substance: AMLODIPINE BESYLATE
  9. TACROLIMUS [Concomitant]
     Active Substance: TACROLIMUS
     Indication: Premedication
     Dosage: DOSE OF FK-506 WAS INCREMENTAL INITIALLY
     Route: 048
  10. TACROLIMUS [Concomitant]
     Active Substance: TACROLIMUS
     Indication: Premedication
     Dosage: REDUCED DOSE
     Route: 048

REACTIONS (1)
  - Alanine aminotransferase increased [Recovered/Resolved]
